FAERS Safety Report 16087118 (Version 1)
Quarter: 2019Q1

REPORT INFORMATION
  Report Type: Spontaneous
  Country: GB (occurrence: GB)
  Receive Date: 20190319
  Receipt Date: 20190319
  Transmission Date: 20190418
  Serious: Yes (Death, Hospitalization, Other)
  Sender: FDA-Public Use
  Company Number: GB-BRISTOL-MYERS SQUIBB COMPANY-BMS-2019-025928

PATIENT
  Age: 55 Year
  Sex: Male

DRUGS (1)
  1. OPDIVO [Suspect]
     Active Substance: NIVOLUMAB
     Indication: ENDOMETRIAL ADENOCARCINOMA
     Dosage: UNAVAILABLE
     Route: 065

REACTIONS (8)
  - Cortisol abnormal [Unknown]
  - Product use in unapproved indication [Unknown]
  - Thyroid function test abnormal [Unknown]
  - Malignant neoplasm progression [Unknown]
  - Pneumonitis [Unknown]
  - Death [Fatal]
  - Nephritis [Unknown]
  - Rash [Unknown]

NARRATIVE: CASE EVENT DATE: 201808
